FAERS Safety Report 7499721-6 (Version None)
Quarter: 2011Q2

REPORT INFORMATION
  Report Type: 
  Country: None (occurrence: None)
  Receive Date: 20110524
  Receipt Date: 20110513
  Transmission Date: 20111010
  Serious: Yes (Other)
  Sender: FDA-Public Use
  Company Number: IE-ROCHE-777381

PATIENT
  Sex: Female

DRUGS (1)
  1. ACTEMRA [Suspect]
     Route: 065

REACTIONS (3)
  - COLITIS [None]
  - CROHN'S DISEASE [None]
  - PNEUMONIA [None]
